FAERS Safety Report 20909411 (Version 1)
Quarter: 2022Q2

REPORT INFORMATION
  Report Type: Spontaneous
  Country: CO (occurrence: CO)
  Receive Date: 20220603
  Receipt Date: 20220603
  Transmission Date: 20220721
  Serious: Yes (Disabling, Other)
  Sender: FDA-Public Use
  Company Number: CO-AMGEN-COLSP2021205895

PATIENT
  Age: 60 Year
  Sex: Female
  Weight: 70 kg

DRUGS (4)
  1. MVASI [Suspect]
     Active Substance: BEVACIZUMAB-AWWB
     Indication: Oligoastrocytoma
     Dosage: 790 MILLIGRAM, DAY 1 AND 21
     Route: 042
     Dates: start: 20201015
  2. MVASI [Suspect]
     Active Substance: BEVACIZUMAB-AWWB
     Indication: Brain neoplasm malignant
  3. LEVETIRACETAM [Concomitant]
     Active Substance: LEVETIRACETAM
     Indication: Oligoastrocytoma
     Dosage: 500 MILLIGRAM, Q12H
     Route: 048
     Dates: start: 20201015
  4. Dalteparina [Concomitant]
     Indication: Oligoastrocytoma
     Dosage: 7500 IU, Q12H
     Dates: start: 20201015

REACTIONS (7)
  - Neurological decompensation [Not Recovered/Not Resolved]
  - Deep vein thrombosis [Recovering/Resolving]
  - Disorientation [Not Recovered/Not Resolved]
  - Off label use [Not Recovered/Not Resolved]
  - Asthenia [Not Recovered/Not Resolved]
  - Somnolence [Not Recovered/Not Resolved]
  - Back pain [Not Recovered/Not Resolved]

NARRATIVE: CASE EVENT DATE: 20210913
